FAERS Safety Report 18673389 (Version 2)
Quarter: 2021Q1

REPORT INFORMATION
  Report Type: Report from Study
  Country: US (occurrence: US)
  Receive Date: 20201229
  Receipt Date: 20210108
  Transmission Date: 20210419
  Serious: Yes (Hospitalization, Other)
  Sender: FDA-Public Use
  Company Number: US-PHARMING-PHAUS2020000478

PATIENT

DRUGS (4)
  1. RUCONEST [Suspect]
     Active Substance: HUMAN C1-ESTERASE INHIBITOR
     Indication: HEREDITARY ANGIOEDEMA WITH C1 ESTERASE INHIBITOR DEFICIENCY
     Dosage: 2750 IU
     Route: 042
     Dates: start: 20201204
  2. FIRAZYR [Concomitant]
     Active Substance: ICATIBANT ACETATE
     Indication: HEREDITARY ANGIOEDEMA WITH C1 ESTERASE INHIBITOR DEFICIENCY
  3. TAKHZYRO [Concomitant]
     Active Substance: LANADELUMAB-FLYO
     Indication: HEREDITARY ANGIOEDEMA WITH C1 ESTERASE INHIBITOR DEFICIENCY
     Dosage: UNK, QOD
  4. ZYRTEC [Concomitant]
     Active Substance: CETIRIZINE HYDROCHLORIDE
     Indication: HYPERSENSITIVITY
     Dosage: UNK, QD

REACTIONS (2)
  - Product use in unapproved indication [Unknown]
  - Pelvic venous thrombosis [Recovered/Resolved]
